FAERS Safety Report 9139674 (Version 1)
Quarter: 2013Q1

REPORT INFORMATION
  Report Type: Spontaneous
  Country: US (occurrence: None)
  Receive Date: 20130204
  Receipt Date: 20130204
  Transmission Date: 20140127
  Serious: Yes (Death)
  Sender: FDA-Public Use
  Company Number: NSR_00915_2013

PATIENT
  Age: 43 Year
  Sex: Male

DRUGS (4)
  1. TRAMADOL [Suspect]
     Indication: PRODUCT USED FOR UNKNOWN INDICATION
     Dosage: (DF)?(UNKNOWN UNTIL NOT CONTINUING)
  2. NEDOCROMIL SODIUM [Suspect]
     Indication: PRODUCT USED FOR UNKNOWN INDICATION
     Dosage: (DF)?(UNKNOWN UNTIL NOT CONTINUING)
  3. DIAZEPAM [Suspect]
     Dosage: (DF)?(UNKNOWN UNTIL NOT CONTINUING)
  4. LAXATIVES [Suspect]
     Dosage: (DF)?(UNKNOWN UNTIL NOT CONTINUING)

REACTIONS (2)
  - Poisoning [None]
  - Intentional drug misuse [None]
